FAERS Safety Report 22287370 (Version 2)
Quarter: 2023Q2

REPORT INFORMATION
  Report Type: Report from Study
  Country: US (occurrence: US)
  Receive Date: 20230505
  Receipt Date: 20230525
  Transmission Date: 20230722
  Serious: Yes (Hospitalization)
  Sender: FDA-Public Use
  Company Number: US-002147023-NVSC2023US098624

PATIENT
  Sex: Female

DRUGS (1)
  1. PIQRAY [Suspect]
     Active Substance: ALPELISIB
     Indication: Breast cancer
     Dosage: 600 MG, QD
     Route: 048

REACTIONS (8)
  - Hyponatraemia [Recovering/Resolving]
  - Pharyngitis [Recovering/Resolving]
  - Dysphagia [Recovering/Resolving]
  - Hyperglycaemia [Recovering/Resolving]
  - Hypokalaemia [Recovering/Resolving]
  - Pharyngeal swelling [Unknown]
  - Hypophagia [Recovering/Resolving]
  - Extra dose administered [Unknown]
